FAERS Safety Report 23781867 (Version 1)
Quarter: 2024Q2

REPORT INFORMATION
  Report Type: Spontaneous
  Country: US (occurrence: US)
  Receive Date: 20240425
  Receipt Date: 20240425
  Transmission Date: 20240715
  Serious: No
  Sender: FDA-Public Use
  Company Number: US-CIPLA LTD-2023US02465

PATIENT

DRUGS (3)
  1. ALBUTEROL [Suspect]
     Active Substance: ALBUTEROL
     Indication: Asthma
     Dosage: 2-4 PUFFS (AS NEEDED EVERY NIGHT? HOWEVER, IF THE ASTHMA WAS SEVERE, THE PATIENT USED TO TAKE IT EVE
  2. ALBUTEROL [Suspect]
     Active Substance: ALBUTEROL
     Dosage: 2-4 PUFFS (AS NEEDED EVERY NIGHT? HOWEVER, IF THE ASTHMA WAS SEVERE, THE PATIENT USED TO TAKE IT EVE
     Dates: start: 202304
  3. ASMANEX [Concomitant]
     Active Substance: MOMETASONE FUROATE
     Indication: Asthma
     Dosage: UNK, QD (2019 OR 2020)
     Route: 065

REACTIONS (3)
  - Asthma [Unknown]
  - Incorrect dose administered by device [Unknown]
  - Device delivery system issue [Unknown]

NARRATIVE: CASE EVENT DATE: 20230504
